FAERS Safety Report 9650490 (Version 1)
Quarter: 2013Q4

REPORT INFORMATION
  Report Type: Spontaneous
  Country: US (occurrence: US)
  Receive Date: 20131029
  Receipt Date: 20131029
  Transmission Date: 20140711
  Serious: Yes (Other)
  Sender: FDA-Public Use
  Company Number: US-AMGEN-USASP2013075517

PATIENT
  Sex: 0

DRUGS (1)
  1. ENBREL [Suspect]
     Indication: PSORIASIS
     Dosage: UNK
     Route: 065
     Dates: start: 2002, end: 2010

REACTIONS (5)
  - Nerve compression [Unknown]
  - Primary progressive multiple sclerosis [Unknown]
  - Limb discomfort [Unknown]
  - Muscular weakness [Unknown]
  - Drug ineffective [Unknown]
